FAERS Safety Report 10617770 (Version 3)
Quarter: 2016Q1

REPORT INFORMATION
  Report Type: Report from Study
  Country: US (occurrence: US)
  Receive Date: 20141201
  Receipt Date: 20160125
  Transmission Date: 20160525
  Serious: Yes (Hospitalization, Other)
  Sender: FDA-Public Use
  Company Number: US-009507513-1411USA010858

PATIENT
  Age: 61 Year
  Sex: Male
  Weight: 64.4 kg

DRUGS (9)
  1. TEMODAR [Suspect]
     Active Substance: TEMOZOLOMIDE
     Indication: GLIOBLASTOMA
     Dosage: 150 MG/KG, UNK
     Route: 042
     Dates: start: 20140502, end: 20140506
  2. SERTRALINE HYDROCHLORIDE. [Concomitant]
     Active Substance: SERTRALINE HYDROCHLORIDE
  3. GRANISETRON [Concomitant]
     Active Substance: GRANISETRON
  4. PEPCID [Concomitant]
     Active Substance: FAMOTIDINE
  5. PROMETHAZINE [Concomitant]
     Active Substance: PROMETHAZINE\PROMETHAZINE HYDROCHLORIDE
  6. DRONABINOL. [Concomitant]
     Active Substance: DRONABINOL
  7. SULFAMETHOXAZOLE (+) TRIMETHOPRIM [Concomitant]
     Active Substance: SULFAMETHOXAZOLE\TRIMETHOPRIM
  8. DOCUSATE SODIUM. [Concomitant]
     Active Substance: DOCUSATE SODIUM
  9. PROVENTIL [Concomitant]
     Active Substance: ALBUTEROL

REACTIONS (4)
  - Asthenia [Recovered/Resolved]
  - Impaired gastric emptying [Recovered/Resolved]
  - Syncope [Recovered/Resolved]
  - Dehydration [Recovered/Resolved]

NARRATIVE: CASE EVENT DATE: 20140523
